FAERS Safety Report 9751105 (Version 2)
Quarter: 2013Q4

REPORT INFORMATION
  Report Type: Spontaneous
  Country: US (occurrence: US)
  Receive Date: 20131212
  Receipt Date: 20131213
  Transmission Date: 20140711
  Serious: No
  Sender: FDA-Public Use
  Company Number: US-TEVA-400979USA

PATIENT
  Age: 30 Year
  Sex: Female
  Weight: 80.36 kg

DRUGS (3)
  1. PARAGARD 380A [Suspect]
     Indication: CONTRACEPTION
     Route: 015
     Dates: start: 20130314, end: 20130411
  2. PARAGARD 380A [Suspect]
     Route: 015
     Dates: start: 20130509
  3. PLAN B ONE STEP [Concomitant]
     Indication: CONTRACEPTION
     Route: 048
     Dates: start: 20130411

REACTIONS (2)
  - Menorrhagia [Not Recovered/Not Resolved]
  - Device expulsion [Recovered/Resolved]
